FAERS Safety Report 23338219 (Version 1)
Quarter: 2023Q4

REPORT INFORMATION
  Report Type: Spontaneous
  Country: US (occurrence: None)
  Receive Date: 20231223
  Receipt Date: 20231223
  Transmission Date: 20240110
  Serious: Yes (Disabling, Other)
  Sender: FDA-Public Use
  Company Number: None

PATIENT
  Sex: Male
  Weight: 103.5 kg

DRUGS (9)
  1. BUPROPION HYDROCHLORIDE [Suspect]
     Active Substance: BUPROPION HYDROCHLORIDE
     Indication: Depression
     Dosage: 1 TABLET ORAL
     Route: 048
  2. METHYLCOBALAMIN\NALTREXONE\TOPIRAMATE [Suspect]
     Active Substance: METHYLCOBALAMIN\NALTREXONE\TOPIRAMATE
     Indication: Decreased appetite
     Dosage: 1 TABLET ORAL
     Route: 048
  3. DEVICE [Concomitant]
     Active Substance: DEVICE
  4. LISINOPRIL [Concomitant]
     Active Substance: LISINOPRIL
  5. HYDROCHLOROTHIAZIDE [Concomitant]
     Active Substance: HYDROCHLOROTHIAZIDE
  6. ROSUVASTATIIN [Concomitant]
  7. MONTELUKAST [Concomitant]
     Active Substance: MONTELUKAST SODIUM
  8. TESTOSTERONE CYPIONATE [Concomitant]
     Active Substance: TESTOSTERONE CYPIONATE
  9. ANASTROZOLE [Concomitant]
     Active Substance: ANASTROZOLE

REACTIONS (16)
  - Rash [None]
  - Rash [None]
  - Nausea [None]
  - Muscle twitching [None]
  - Hypersensitivity [None]
  - Depressed level of consciousness [None]
  - Muscle spasms [None]
  - Seizure [None]
  - Yawning [None]
  - Feeling abnormal [None]
  - Hyperhidrosis [None]
  - Feeling of body temperature change [None]
  - Psychotic disorder [None]
  - Insomnia [None]
  - Anxiety [None]
  - Depression [None]
